FAERS Safety Report 10286014 (Version 2)
Quarter: 2014Q3

REPORT INFORMATION
  Report Type: Spontaneous
  Country: FR (occurrence: FR)
  Receive Date: 20140709
  Receipt Date: 20140904
  Transmission Date: 20150326
  Serious: Yes (Other)
  Sender: FDA-Public Use
  Company Number: FR-009507513-1407FRA002488

PATIENT
  Age: 57 Year
  Sex: Male

DRUGS (1)
  1. STROMECTOL [Suspect]
     Active Substance: IVERMECTIN

REACTIONS (3)
  - Colon cancer [Unknown]
  - Ascites [Unknown]
  - Generalised oedema [Unknown]
